FAERS Safety Report 4645242-5 (Version None)
Quarter: 2005Q2

REPORT INFORMATION
  Report Type: 
  Country: None (occurrence: None)
  Receive Date: 20050331
  Receipt Date: 20050121
  Transmission Date: 20051028
  Serious: No
  Sender: FDA-Public Use
  Company Number: 04P-163-0282538-00

PATIENT
  Age: 67 Year
  Sex: Male

DRUGS (6)
  1. HUMIRA [Suspect]
     Indication: RHEUMATOID ARTHRITIS
     Dosage: 40 MG, 1 IN 2 WK, SUBCUTANEOUS
     Route: 058
     Dates: start: 20030917, end: 20040927
  2. HYDROXYCHLOROQUINE PHOSPHATE [Concomitant]
  3. CITALOPRAM HYDROBROMIDE [Concomitant]
  4. ATORVASTATIN [Concomitant]
  5. RABEPRAZOLE SODIUM [Concomitant]
  6. CLONAZEPAM [Concomitant]

REACTIONS (2)
  - ARTHRALGIA [None]
  - DEMYELINATING POLYNEUROPATHY [None]
